FAERS Safety Report 6932691-5 (Version None)
Quarter: 2010Q3

REPORT INFORMATION
  Report Type: 
  Country: None (occurrence: None)
  Receive Date: 20100819
  Receipt Date: 20100809
  Transmission Date: 20110219
  Serious: Yes (Hospitalization, Other)
  Sender: FDA-Public Use
  Company Number: FR-VALEANT-2010VX001258

PATIENT
  Age: 74 Year
  Sex: Male

DRUGS (2)
  1. MESTINON [Suspect]
     Indication: MYASTHENIA GRAVIS
     Route: 048
     Dates: start: 20100204, end: 20100409
  2. MYTELASE [Concomitant]
     Route: 048
     Dates: start: 20100219, end: 20100316

REACTIONS (6)
  - CONDITION AGGRAVATED [None]
  - LUNG DISORDER [None]
  - MYASTHENIA GRAVIS [None]
  - NOSOCOMIAL INFECTION [None]
  - RESPIRATORY FAILURE [None]
  - SALIVARY HYPERSECRETION [None]
